FAERS Safety Report 8380085-0 (Version None)
Quarter: 2012Q2

REPORT INFORMATION
  Report Type: 
  Country: None (occurrence: None)
  Receive Date: 20120523
  Receipt Date: 20120510
  Transmission Date: 20120825
  Serious: Yes (Death, Hospitalization)
  Sender: FDA-Public Use
  Company Number: JP-GLAXOSMITHKLINE-B0795407A

PATIENT
  Sex: Male

DRUGS (12)
  1. VALPROATE SODIUM [Suspect]
     Indication: PRODUCT USED FOR UNKNOWN INDICATION
     Route: 048
  2. VALERIN (JAPAN) [Concomitant]
     Dosage: 3IUAX PER DAY
     Route: 048
  3. SCOPOLAMINE [Concomitant]
     Dosage: 2IUAX PER DAY
     Route: 048
  4. REBAMIPIDE [Concomitant]
     Dosage: 3IUAX PER DAY
     Route: 048
  5. LAMICTAL [Suspect]
     Indication: PRODUCT USED FOR UNKNOWN INDICATION
     Dosage: 25MG PER DAY
     Route: 048
     Dates: end: 20120302
  6. TETRAMIDE [Concomitant]
     Dosage: 1IUAX PER DAY
     Route: 048
  7. ACETAMINOPHEN [Concomitant]
     Dosage: 1IUAX PER DAY
     Route: 048
  8. AMOXAPINE [Concomitant]
     Dosage: 4IUAX PER DAY
     Route: 048
  9. ROZEREM [Concomitant]
     Dosage: 1IUAX PER DAY
     Route: 048
  10. VOLTAREN [Concomitant]
     Dosage: 1IUAX PER DAY
     Route: 048
  11. LEXAPRO [Concomitant]
     Dosage: 2IUAX PER DAY
     Route: 048
     Dates: end: 20120302
  12. LAC-B [Concomitant]
     Dosage: 3G PER DAY
     Route: 048

REACTIONS (22)
  - ALANINE AMINOTRANSFERASE INCREASED [None]
  - GAMMA-GLUTAMYLTRANSFERASE INCREASED [None]
  - PAPULE [None]
  - CONJUNCTIVAL HYPERAEMIA [None]
  - VOMITING [None]
  - PYREXIA [None]
  - ASPARTATE AMINOTRANSFERASE INCREASED [None]
  - MULTI-ORGAN FAILURE [None]
  - C-REACTIVE PROTEIN INCREASED [None]
  - GENERALISED ERYTHEMA [None]
  - CHILLS [None]
  - LIP EROSION [None]
  - TOXIC EPIDERMAL NECROLYSIS [None]
  - WHITE BLOOD CELL COUNT INCREASED [None]
  - DIARRHOEA [None]
  - BLOOD UREA INCREASED [None]
  - BLOOD CREATINE INCREASED [None]
  - BLOOD ALKALINE PHOSPHATASE INCREASED [None]
  - BLOOD CREATINE PHOSPHOKINASE INCREASED [None]
  - BLOOD LACTATE DEHYDROGENASE INCREASED [None]
  - ABDOMINAL PAIN UPPER [None]
  - HAEMATURIA [None]
